FAERS Safety Report 4783865-3 (Version None)
Quarter: 2005Q3

REPORT INFORMATION
  Report Type: 
  Country: None (occurrence: None)
  Receive Date: 20050929
  Receipt Date: 20050505
  Transmission Date: 20060218
  Serious: Yes (Other)
  Sender: FDA-Public Use
  Company Number: US-MERCK-0505USA00766

PATIENT
  Sex: Female

DRUGS (8)
  1. VIOXX [Suspect]
     Indication: OSTEOARTHRITIS
     Route: 048
     Dates: start: 19990629, end: 20010210
  2. CAPOTEN [Concomitant]
     Indication: HYPERTENSION
     Route: 065
     Dates: start: 19990201
  3. DIGOXIN [Concomitant]
     Indication: CARDIAC FAILURE
     Route: 065
     Dates: start: 19991101
  4. DOXEPIN HYDROCHLORIDE [Concomitant]
     Indication: DEPRESSION
     Route: 065
  5. DOXEPIN HYDROCHLORIDE [Concomitant]
     Indication: INSOMNIA
     Route: 065
  6. ISORBID [Concomitant]
     Indication: ANGINA PECTORIS
     Route: 065
  7. MACROBID [Concomitant]
     Indication: URINARY TRACT INFECTION
     Route: 065
  8. MICRO-K [Concomitant]
     Indication: MINERAL SUPPLEMENTATION
     Route: 065

REACTIONS (7)
  - BLOOD CHOLESTEROL INCREASED [None]
  - CARDIAC FAILURE CONGESTIVE [None]
  - DIABETES MELLITUS [None]
  - DYSPNOEA [None]
  - MYOCARDIAL INFARCTION [None]
  - OEDEMA PERIPHERAL [None]
  - PANCREATITIS [None]
